FAERS Safety Report 21399129 (Version 2)
Quarter: 2022Q4

REPORT INFORMATION
  Report Type: Spontaneous
  Country: GB (occurrence: GB)
  Receive Date: 20221001
  Receipt Date: 20221116
  Transmission Date: 20230113
  Serious: Yes (Death, Other)
  Sender: FDA-Public Use
  Company Number: GB-MHRA-ADR 24754742

PATIENT
  Sex: Female

DRUGS (34)
  1. CIPROFLOXACIN [Suspect]
     Active Substance: CIPROFLOXACIN
     Indication: Product used for unknown indication
     Dosage: UNK (INJECTION)
     Route: 065
  2. CIPROFLOXACIN [Suspect]
     Active Substance: CIPROFLOXACIN
     Dosage: UNK (SOLUTION FOR INFUSION)
     Route: 065
  3. CIPROFLOXACIN [Suspect]
     Active Substance: CIPROFLOXACIN
     Dosage: UNK (MODIFIED-RELEASE TABLET)
     Route: 065
  4. CIPROFLOXACIN [Suspect]
     Active Substance: CIPROFLOXACIN
     Dosage: UNK (MODIFIED-RELEASE TABLET)
     Route: 065
  5. CIPROFLOXACIN [Suspect]
     Active Substance: CIPROFLOXACIN
     Dosage: UNK (INHALATION POWDER)
     Route: 065
  6. ONDANSETRON [Suspect]
     Active Substance: ONDANSETRON
     Indication: Product used for unknown indication
     Dosage: UNK; ;
     Route: 065
  7. CIPROFLOXACIN LACTATE [Suspect]
     Active Substance: CIPROFLOXACIN LACTATE
     Indication: Product used for unknown indication
     Dosage: 2 DOSAGE FORM ((2 PUFFS) (AEROSOL INHALATION), 25 MCG (DRYPOWDER INHALER DEVICE INHALER);0
     Route: 065
  8. ENOXAPARIN SODIUM [Suspect]
     Active Substance: ENOXAPARIN SODIUM
     Indication: Product used for unknown indication
     Dosage: UNK; ;
     Route: 065
  9. ALBUTEROL [Suspect]
     Active Substance: ALBUTEROL
     Indication: Product used for unknown indication
     Dosage: 110 MICROGRAM
     Route: 065
  10. ALBUTEROL [Suspect]
     Active Substance: ALBUTEROL
     Dosage: 25 MICROGRAM (2 DF (2 PUFFS)(AEROSOL INHALATION)2 PUFF(S) 25 MCG(DRY POWDER INHALER DEVICE INHAL...)
     Route: 065
  11. ALBUTEROL [Suspect]
     Active Substance: ALBUTEROL
     Dosage: 100 MICROGRAM
     Route: 065
  12. ALBUTEROL [Suspect]
     Active Substance: ALBUTEROL
     Dosage: 25 MICROGRAM  (2 PUFF(S), POWDER AND SOLVENT FOR ENDOSINUSIAL SOLUTION )
     Route: 065
  13. SEREVENT DISKUS [Suspect]
     Active Substance: SALMETEROL XINAFOATE
     Indication: Product used for unknown indication
     Dosage: 2 DOSAGE FORM (2 PUFF(S)0
     Route: 065
  14. SEREVENT DISKUS [Suspect]
     Active Substance: SALMETEROL XINAFOATE
     Dosage: 110 MICROGRAM
     Route: 065
     Dates: end: 201506
  15. SEREVENT DISKUS [Suspect]
     Active Substance: SALMETEROL XINAFOATE
     Dosage: 100 MICROGRAM (100 UG (SALMETEROL XINAFOATE DISKUS DRY POWDER); ;0
     Route: 065
  16. SEREVENT DISKUS [Suspect]
     Active Substance: SALMETEROL XINAFOATE
     Dosage: 25 MICROGRAM(2 PUFF(S) 25 MICROGRAMS 2 PUFF(S); 2 PUFF(S), 25MCG; 2 DF (2 PUFFS (DRY POWDER INHALER
     Route: 065
  17. SEREVENT DISKUS [Suspect]
     Active Substance: SALMETEROL XINAFOATE
     Dosage: 2 MICROGRAM(2 DF (2 PUFFS) (AEROSOL INHALATION) [2 PUFF(S), 25 MCG (DRY POWDER INHALER DEVICE INHALE
     Route: 065
  18. ENOXAPARIN [Suspect]
     Active Substance: ENOXAPARIN
     Indication: Product used for unknown indication
     Dosage: UNK
     Route: 065
  19. ENOXAPARIN [Suspect]
     Active Substance: ENOXAPARIN
     Dosage: UNK
     Route: 065
  20. ENOXAPARIN [Suspect]
     Active Substance: ENOXAPARIN
     Dosage: UNK
     Route: 065
  21. SALMETEROL [Suspect]
     Active Substance: SALMETEROL
     Indication: Product used for unknown indication
     Dosage: UNK (DISKUS DRY POWDER INHALER DEVICE)
     Route: 065
  22. SALMETEROL [Suspect]
     Active Substance: SALMETEROL
     Dosage: 2 DOSAGE FORM 2 DF (2 PUFFS) (AEROSOL INHALATION) [2 PUFF(S), 25 MCG (DRY POWDER INHALER DEVICE INHA
     Route: 065
  23. SALMETEROL [Suspect]
     Active Substance: SALMETEROL
     Dosage: 100 MICROGRAM
     Route: 065
  24. SALMETEROL [Suspect]
     Active Substance: SALMETEROL
     Dosage: 25 MICROGRAM (POWDER AND SOLVENT FOR ENDOSINUSIAL SOLUTION 25 UG, UNK; 25 MICROGRAM (2 PUFF(S)); 25
     Route: 065
  25. ALBUTEROL [Suspect]
     Active Substance: ALBUTEROL
     Indication: Product used for unknown indication
     Dosage: UNK
     Route: 065
  26. ALBUTEROL [Suspect]
     Active Substance: ALBUTEROL
     Dosage: 100 MICROGRAM
     Route: 065
  27. CIPROFLOXACIN [Suspect]
     Active Substance: CIPROFLOXACIN
     Indication: Product used for unknown indication
     Dosage: UNK
     Route: 065
  28. ALBUTEROL SULFATE [Suspect]
     Active Substance: ALBUTEROL SULFATE
     Indication: Product used for unknown indication
     Dosage: 110 MICROGRAM
     Route: 065
  29. ALBUTEROL SULFATE [Suspect]
     Active Substance: ALBUTEROL SULFATE
     Dosage: 100 MICROGRAM
     Route: 065
  30. SALMETEROL XINAFOATE [Suspect]
     Active Substance: SALMETEROL XINAFOATE
     Indication: Product used for unknown indication
     Dosage: 100 MILLIGRAM
     Route: 065
  31. SALMETEROL XINAFOATE [Suspect]
     Active Substance: SALMETEROL XINAFOATE
     Dosage: 25 MICROGRAM
     Route: 065
  32. SALMETEROL XINAFOATE [Suspect]
     Active Substance: SALMETEROL XINAFOATE
     Dosage: 100 MICROGRAM
     Route: 065
  33. SALMETEROL XINAFOATE [Suspect]
     Active Substance: SALMETEROL XINAFOATE
     Dosage: 25 MICROGRAM(2 PUFF(S), POWDER AND SOLVENT FOR ENDOSINUSIAL SOLUTION )
     Route: 065
  34. SALMETEROL XINAFOATE [Suspect]
     Active Substance: SALMETEROL XINAFOATE
     Dosage: 2 DF (2 PUFFS) (AEROSOL INHALATION) [2 PUFF(S), 25 MCG (DRYPOWDER INHALER DEVICE INHALER);{/
     Route: 065

REACTIONS (2)
  - Death [Fatal]
  - Dysphonia [Fatal]
